FAERS Safety Report 12686466 (Version 3)
Quarter: 2016Q4

REPORT INFORMATION
  Report Type: Report from Study
  Country: US (occurrence: US)
  Receive Date: 20160825
  Receipt Date: 20161005
  Transmission Date: 20170207
  Serious: Yes (Hospitalization)
  Sender: FDA-Public Use
  Company Number: US-BAYER-2016-122792

PATIENT
  Age: 62 Year
  Sex: Female

DRUGS (2)
  1. ADEMPAS [Suspect]
     Active Substance: RIOCIGUAT
     Indication: PULMONARY ARTERIAL HYPERTENSION
     Dosage: 2 MG, TID
     Route: 048
  2. ADEMPAS [Suspect]
     Active Substance: RIOCIGUAT
     Indication: PULMONARY ARTERIAL HYPERTENSION
     Dosage: UNK
     Route: 048
     Dates: start: 20151116

REACTIONS (8)
  - Vomiting [None]
  - Diarrhoea [None]
  - Hypotension [None]
  - Concussion [None]
  - Headache [None]
  - Nausea [None]
  - Haemoglobin decreased [None]
  - Sepsis [None]

NARRATIVE: CASE EVENT DATE: 20160611
